FAERS Safety Report 10799227 (Version 1)
Quarter: 2015Q1

REPORT INFORMATION
  Report Type: Spontaneous
  Country: US (occurrence: US)
  Receive Date: 20150216
  Receipt Date: 20150216
  Transmission Date: 20150721
  Serious: No
  Sender: FDA-Public Use
  Company Number: US-ALLERGAN-1400702US

PATIENT
  Sex: Female

DRUGS (4)
  1. MAXITROL [Concomitant]
     Active Substance: DEXAMETHASONE\NEOMYCIN SULFATE\POLYMYXIN B SULFATE
     Indication: DRY EYE
     Dosage: UNK, PRN
     Route: 047
     Dates: start: 201312
  2. HOMEOPATHIC EYE DROP NOS [Concomitant]
     Indication: DRY EYE
     Dosage: UNK, PRN
     Route: 047
  3. RESTASIS [Suspect]
     Active Substance: CYCLOSPORINE
     Indication: DRY EYE
     Route: 047
  4. CYMBALTA [Concomitant]
     Active Substance: DULOXETINE HYDROCHLORIDE
     Indication: NEUROPATHY PERIPHERAL
     Dosage: 30 MG, QD
     Route: 048

REACTIONS (4)
  - Eye irritation [Recovered/Resolved]
  - Intraocular pressure increased [Unknown]
  - Dry eye [Recovered/Resolved]
  - Incorrect dose administered [Unknown]
